FAERS Safety Report 9426820 (Version 1)
Quarter: 2013Q3

REPORT INFORMATION
  Report Type: Spontaneous
  Country: US (occurrence: US)
  Receive Date: 20130730
  Receipt Date: 20130730
  Transmission Date: 20140515
  Serious: No
  Sender: FDA-Public Use
  Company Number: US-SANOFI-AVENTIS-2012SA090082

PATIENT
  Age: 90 Year
  Sex: Female

DRUGS (3)
  1. ZOLPIDEM TARTRATE [Suspect]
     Indication: INSOMNIA
     Dosage: PRODUCT START DATE MENTIONED AS 8-10 YEARS AGO
     Route: 065
  2. AMBIEN [Suspect]
     Indication: INSOMNIA
     Route: 065
  3. AMBIEN CR [Suspect]
     Indication: INSOMNIA
     Route: 065

REACTIONS (3)
  - Sleep talking [Unknown]
  - Fatigue [Unknown]
  - Incorrect drug administration duration [Unknown]
